FAERS Safety Report 12647535 (Version 1)
Quarter: 2016Q3

REPORT INFORMATION
  Report Type: Spontaneous
  Country: US (occurrence: None)
  Receive Date: 20160811
  Receipt Date: 20160811
  Transmission Date: 20161109
  Serious: Yes (Other)
  Sender: FDA-Public Use
  Company Number: None

PATIENT
  Age: 48 Year
  Sex: Female
  Weight: 49.9 kg

DRUGS (2)
  1. CLARITIN [Concomitant]
     Active Substance: LORATADINE
  2. MICONAZOLE, 45 G WALGREENS [Suspect]
     Active Substance: MICONAZOLE
     Indication: VULVOVAGINAL PRURITUS
     Dosage: 1 1 ONCE A DAY APPLIED TO A SURFACE, USUALLY THE SKIN
     Route: 061
     Dates: start: 20160701, end: 20160720

REACTIONS (7)
  - Tremor [None]
  - Diarrhoea [None]
  - Nausea [None]
  - Abdominal pain upper [None]
  - Skin warm [None]
  - Dry mouth [None]
  - Chills [None]

NARRATIVE: CASE EVENT DATE: 20160719
